FAERS Safety Report 5057701-4 (Version None)
Quarter: 2006Q3

REPORT INFORMATION
  Report Type: 
  Country: None (occurrence: None)
  Receive Date: 20060721
  Receipt Date: 20060119
  Transmission Date: 20061208
  Serious: No
  Sender: FDA-Public Use
  Company Number: US-GLAXOSMITHKLINE-A0590060A

PATIENT
  Age: 70 Year
  Sex: Female

DRUGS (6)
  1. AVANDIA [Suspect]
     Route: 048
  2. WELLBUTRIN [Suspect]
     Indication: DEPRESSION
     Dosage: 300MG PER DAY
     Route: 048
     Dates: start: 20060112, end: 20060119
  3. AVAPRO [Concomitant]
  4. HUMAN INSULIN [Concomitant]
  5. LUNESTA [Concomitant]
  6. DUONEB [Concomitant]

REACTIONS (6)
  - DYSPEPSIA [None]
  - HEADACHE [None]
  - MYALGIA [None]
  - NAUSEA [None]
  - OEDEMA [None]
  - PAIN IN EXTREMITY [None]
